FAERS Safety Report 8521301-1 (Version None)
Quarter: 2012Q3

REPORT INFORMATION
  Report Type: 
  Country: None (occurrence: None)
  Receive Date: 20120719
  Receipt Date: 20120713
  Transmission Date: 20120928
  Serious: Yes (Other)
  Sender: FDA-Public Use
  Company Number: FR-009507513-1207FRA003456

PATIENT

DRUGS (3)
  1. VIRAFERONPEG [Suspect]
     Dosage: 80 UNK, UNK
  2. VIRAFERONPEG [Suspect]
     Indication: PRODUCT USED FOR UNKNOWN INDICATION
     Dosage: 150 MCG, QW
     Route: 058
     Dates: start: 20110301, end: 20110601
  3. REBETOL [Concomitant]
     Indication: PRODUCT USED FOR UNKNOWN INDICATION
     Dosage: UNK
     Route: 048
     Dates: start: 20110301

REACTIONS (5)
  - MAJOR DEPRESSION [None]
  - ACCIDENTAL OVERDOSE [None]
  - MEDICATION ERROR [None]
  - DRUG DISPENSING ERROR [None]
  - AGGRESSION [None]
